FAERS Safety Report 19678108 (Version 1)
Quarter: 2021Q3

REPORT INFORMATION
  Report Type: Spontaneous
  Country: KR (occurrence: KR)
  Receive Date: 20210810
  Receipt Date: 20210810
  Transmission Date: 20211014
  Serious: Yes (Death, Hospitalization, Other)
  Sender: FDA-Public Use
  Company Number: KR-SUN PHARMACEUTICAL INDUSTRIES LTD-2021RR-307018

PATIENT
  Age: 37 Year
  Sex: Female

DRUGS (5)
  1. AVASTIN [Suspect]
     Active Substance: BEVACIZUMAB
     Indication: ADRENOCORTICAL CARCINOMA
     Dosage: UNK, WEEKLY
     Route: 065
     Dates: start: 20151105
  2. FLUOROURACIL. [Suspect]
     Active Substance: FLUOROURACIL
     Indication: ADRENOCORTICAL CARCINOMA
     Dosage: FOLFOX 1, WEEKLY
     Route: 065
     Dates: start: 20151105
  3. FOLINIC ACID [Suspect]
     Active Substance: LEUCOVORIN
     Indication: ADRENOCORTICAL CARCINOMA
     Dosage: FOLFOX 1, WEEKLY
     Route: 065
     Dates: start: 20151105
  4. OXALIPLATIN. [Suspect]
     Active Substance: OXALIPLATIN
     Indication: ADRENOCORTICAL CARCINOMA
     Dosage: FOLFOX 1, WEEKLY
     Route: 065
     Dates: start: 20151105
  5. VANCOMYCIN HYDROCHLORIDE. [Suspect]
     Active Substance: VANCOMYCIN HYDROCHLORIDE
     Indication: ADRENOCORTICAL CARCINOMA
     Dosage: UNK
     Route: 065
     Dates: start: 20151105

REACTIONS (8)
  - Infection [Unknown]
  - Pneumonia bacterial [Unknown]
  - Neutropenia [Unknown]
  - Mucosal inflammation [Unknown]
  - Disease progression [Fatal]
  - Respiratory failure [Unknown]
  - Septic shock [Unknown]
  - Drug ineffective [Unknown]
